APPROVED DRUG PRODUCT: COMPAZINE
Active Ingredient: PROCHLORPERAZINE MALEATE
Strength: EQ 10MG BASE
Dosage Form/Route: CAPSULE, EXTENDED RELEASE;ORAL
Application: N021019 | Product #001
Applicant: GLAXOSMITHKLINE
Approved: Oct 6, 1999 | RLD: No | RS: No | Type: DISCN